FAERS Safety Report 12462457 (Version 1)
Quarter: 2016Q2

REPORT INFORMATION
  Report Type: Spontaneous
  Country: US (occurrence: US)
  Receive Date: 20160614
  Receipt Date: 20160614
  Transmission Date: 20160815
  Serious: No
  Sender: FDA-Public Use
  Company Number: US-ACCORD-037099

PATIENT
  Age: 63 Year
  Sex: Male
  Weight: 72.73 kg

DRUGS (1)
  1. ACCORD^S CLONAZEPAM [Suspect]
     Active Substance: CLONAZEPAM
     Indication: ANXIETY
     Dosage: STRENGTH: 1 MG
     Route: 048
     Dates: start: 20160107, end: 20160111

REACTIONS (4)
  - Drug withdrawal syndrome [Recovered/Resolved]
  - Drug ineffective [Unknown]
  - Product substitution issue [Unknown]
  - Intentional product use issue [Recovered/Resolved]

NARRATIVE: CASE EVENT DATE: 20160109
